FAERS Safety Report 6825012-X (Version None)
Quarter: 2010Q3

REPORT INFORMATION
  Report Type: 
  Country: None (occurrence: None)
  Receive Date: 20100708
  Receipt Date: 20070104
  Transmission Date: 20110219
  Serious: No
  Sender: FDA-Public Use
  Company Number: US-PFIZER INC-2007002524

PATIENT
  Sex: Female
  Weight: 99.79 kg

DRUGS (2)
  1. CHANTIX [Suspect]
     Indication: SMOKING CESSATION THERAPY
     Dates: start: 20070101
  2. TRAMADOL [Concomitant]
     Indication: SCIATIC NERVE NEUROPATHY

REACTIONS (1)
  - NAUSEA [None]
